FAERS Safety Report 15775164 (Version 3)
Quarter: 2019Q1

REPORT INFORMATION
  Report Type: Spontaneous
  Country: US (occurrence: US)
  Receive Date: 20181231
  Receipt Date: 20190121
  Transmission Date: 20190417
  Serious: Yes (Life-Threatening)
  Sender: FDA-Public Use
  Company Number: US-JNJFOC-20180809196

PATIENT
  Age: 61 Year
  Sex: Female
  Weight: 81.65 kg

DRUGS (15)
  1. CLOTRIMAZOLE. [Concomitant]
     Active Substance: CLOTRIMAZOLE
     Indication: PRURITUS
     Dosage: 1% CREAM
     Route: 065
     Dates: start: 20180618
  2. HYDROQUINONE. [Concomitant]
     Active Substance: HYDROQUINONE
     Indication: SKIN DISCOLOURATION
     Route: 065
  3. LIPITOR [Concomitant]
     Active Substance: ATORVASTATIN CALCIUM
     Indication: BLOOD CHOLESTEROL
     Route: 065
     Dates: start: 2016
  4. BUPROPION. [Concomitant]
     Active Substance: BUPROPION
     Indication: DEPRESSION
     Route: 065
     Dates: start: 2015
  5. BENGAY ULTRA STRENGTH NON GREASY PAIN RELIEVING [Suspect]
     Active Substance: CAMPHOR (SYNTHETIC)\MENTHOL\METHYL SALICYLATE
     Indication: PAIN
     Dosage: ON THE TIP OF THE FINGER APPROXIMATELY 1/2  INCH; AS DIRECTED NOT MORE THAN 3-4 TIMES DAILY
     Route: 061
     Dates: start: 20180805, end: 20180805
  6. ADVIL [Concomitant]
     Active Substance: IBUPROFEN
     Indication: OSTEOARTHRITIS
     Route: 065
     Dates: start: 2012
  7. CLARITIN [Concomitant]
     Active Substance: LORATADINE
     Indication: MULTIPLE ALLERGIES
     Route: 065
  8. FLEXERIL [Concomitant]
     Active Substance: CYCLOBENZAPRINE HYDROCHLORIDE
     Indication: OSTEOARTHRITIS
     Route: 065
     Dates: start: 2015
  9. VENLAFAXINE [Concomitant]
     Active Substance: VENLAFAXINE HYDROCHLORIDE
     Indication: DEPRESSION
     Route: 065
     Dates: start: 2015
  10. BENGAY ULTRA STRENGTH NON GREASY PAIN RELIEVING [Suspect]
     Active Substance: CAMPHOR (SYNTHETIC)\MENTHOL\METHYL SALICYLATE
     Indication: LIGAMENT SPRAIN
     Dosage: ON THE TIP OF THE FINGER APPROXIMATELY 1/2  INCH; AS DIRECTED NOT MORE THAN 3-4 TIMES DAILY
     Route: 061
     Dates: start: 20180805, end: 20180805
  11. PEPCID COMPLETE [Concomitant]
     Active Substance: CALCIUM CARBONATE\FAMOTIDINE\MAGNESIUM HYDROXIDE
     Indication: GASTRIC DISORDER
     Route: 065
     Dates: start: 2012
  12. TYLENOL [Concomitant]
     Active Substance: ACETAMINOPHEN
     Indication: OSTEOARTHRITIS
     Route: 065
     Dates: start: 2012
  13. CYCLOBENZAPRINE. [Concomitant]
     Active Substance: CYCLOBENZAPRINE
     Indication: HYPERSENSITIVITY
     Route: 065
     Dates: start: 201806
  14. METFORMIN [Concomitant]
     Active Substance: METFORMIN HYDROCHLORIDE
     Indication: GLUCOSE TOLERANCE IMPAIRED
     Route: 065
     Dates: start: 2014
  15. AMITRIPTYLINE [Concomitant]
     Active Substance: AMITRIPTYLINE
     Indication: DEPRESSION
     Route: 065
     Dates: start: 2015

REACTIONS (2)
  - Increased upper airway secretion [Recovered/Resolved with Sequelae]
  - Dyspnoea [Recovered/Resolved with Sequelae]

NARRATIVE: CASE EVENT DATE: 20180806
